FAERS Safety Report 11318095 (Version 1)
Quarter: 2015Q3

REPORT INFORMATION
  Report Type: Spontaneous
  Country: DE (occurrence: DE)
  Receive Date: 20150728
  Receipt Date: 20150728
  Transmission Date: 20151125
  Serious: Yes (Hospitalization)
  Sender: FDA-Public Use
  Company Number: DE-ABBVIE-15P-062-1415037-00

PATIENT
  Age: 73 Year
  Sex: Male
  Weight: 90 kg

DRUGS (1)
  1. DUODOPA [Suspect]
     Active Substance: CARBIDOPA\LEVODOPA
     Indication: PARKINSON^S DISEASE
     Dosage: 3.4ML/H FROM 7AM TO 10PM AND 3.5ML/H FROM 22PM TO 7 AM
     Route: 050
     Dates: start: 201408

REACTIONS (5)
  - Parkinson^s disease [Unknown]
  - Drug effect variable [Unknown]
  - Hypokinesia [Recovered/Resolved]
  - Device use error [Recovered/Resolved]
  - Medication error [Recovered/Resolved]

NARRATIVE: CASE EVENT DATE: 20150615
